FAERS Safety Report 19283838 (Version 2)
Quarter: 2023Q4

REPORT INFORMATION
  Report Type: Other
  Country: IN (occurrence: None)
  Receive Date: 20210521
  Receipt Date: 20231201
  Transmission Date: 20240110
  Serious: Yes (Other)
  Sender: FDA-Public Use
  Company Number: IN-SAPTALIS PHARMACEUTICALS,LLC-000066

PATIENT
  Age: 48 Year
  Sex: Female

DRUGS (1)
  1. TRIAMCINOLONE ACETONIDE [Suspect]
     Active Substance: TRIAMCINOLONE ACETONIDE
     Indication: Product used for unknown indication

REACTIONS (6)
  - Intercepted product administration error [Unknown]
  - Retinal deposits [Recovered/Resolved]
  - Retinal tear [Recovered/Resolved]
  - Visual impairment [Recovered/Resolved]
  - Perforation [Unknown]
  - Periorbital abscess [Unknown]
